FAERS Safety Report 6753367-3 (Version None)
Quarter: 2010Q2

REPORT INFORMATION
  Report Type: 
  Country: None (occurrence: None)
  Receive Date: 20100603
  Receipt Date: 20100526
  Transmission Date: 20101027
  Serious: Yes (Hospitalization)
  Sender: FDA-Public Use
  Company Number: BR-ASTRAZENECA-2010SE24442

PATIENT
  Age: 70 Year
  Sex: Female
  Weight: 78 kg

DRUGS (2)
  1. ATACAND HCT [Suspect]
     Indication: HYPERTENSION
     Dosage: 16/12.5 MG HALF TABLET OD
     Route: 048
     Dates: start: 20060101, end: 20100501
  2. ATACAND HCT [Suspect]
     Dosage: 16/12.5 MG BID
     Route: 048
     Dates: start: 20100525

REACTIONS (2)
  - DRUG INEFFECTIVE [None]
  - HYPERTENSION [None]
